FAERS Safety Report 14910158 (Version 1)
Quarter: 2018Q2

REPORT INFORMATION
  Report Type: Spontaneous
  Country: US (occurrence: US)
  Receive Date: 20180517
  Receipt Date: 20180517
  Transmission Date: 20180711
  Serious: No
  Sender: FDA-Public Use
  Company Number: US-PFIZER INC-2018184661

PATIENT
  Age: 48 Year
  Sex: Female

DRUGS (5)
  1. METHOTREXATE SODIUM. [Suspect]
     Active Substance: METHOTREXATE SODIUM
     Dosage: UNK
     Dates: end: 2006
  2. MORPHINE SULFATE. [Suspect]
     Active Substance: MORPHINE SULFATE
     Dosage: UNK
  3. HUMIRA [Suspect]
     Active Substance: ADALIMUMAB
     Dosage: UNK
  4. ULTRAM [Suspect]
     Active Substance: TRAMADOL HYDROCHLORIDE
     Dosage: UNK
  5. MOBIC [Suspect]
     Active Substance: MELOXICAM
     Dosage: UNK

REACTIONS (1)
  - Drug hypersensitivity [Unknown]
